FAERS Safety Report 10174509 (Version 4)
Quarter: 2014Q2

REPORT INFORMATION
  Report Type: Report from Study
  Country: DE (occurrence: DE)
  Receive Date: 20140515
  Receipt Date: 20140529
  Transmission Date: 20141212
  Serious: Yes (Hospitalization)
  Sender: FDA-Public Use
  Company Number: DE-JNJFOC-20140504252

PATIENT
  Age: 57 Year
  Sex: Male
  Weight: 92 kg

DRUGS (2)
  1. SIMPONI [Suspect]
     Indication: PSORIATIC ARTHROPATHY
     Route: 058
     Dates: start: 20130516
  2. METHOTREXAT [Concomitant]
     Indication: PSORIATIC ARTHROPATHY
     Route: 065
     Dates: start: 201307

REACTIONS (1)
  - Basedow^s disease [Recovered/Resolved]
